FAERS Safety Report 16381903 (Version 3)
Quarter: 2019Q2

REPORT INFORMATION
  Report Type: Spontaneous
  Country: US (occurrence: US)
  Receive Date: 20190603
  Receipt Date: 20190625
  Transmission Date: 20190711
  Serious: No
  Sender: FDA-Public Use
  Company Number: US-009507513-1906USA000044

PATIENT
  Age: 24 Year
  Sex: Female
  Weight: 53.56 kg

DRUGS (1)
  1. NEXPLANON [Suspect]
     Active Substance: ETONOGESTREL
     Indication: CONTRACEPTION
     Dosage: 1 IMPLANT, UNK
     Route: 059
     Dates: start: 20160505, end: 20190513

REACTIONS (6)
  - Device deployment issue [Recovered/Resolved]
  - Hypoaesthesia [Unknown]
  - Implant site fibrosis [Unknown]
  - Product quality issue [Unknown]
  - Menstruation irregular [Unknown]
  - Incorrect product administration duration [Unknown]

NARRATIVE: CASE EVENT DATE: 20160505
